FAERS Safety Report 7019964-5 (Version None)
Quarter: 2010Q3

REPORT INFORMATION
  Report Type: 
  Country: None (occurrence: None)
  Receive Date: 20100929
  Receipt Date: 20100921
  Transmission Date: 20110219
  Serious: Yes (Other)
  Sender: FDA-Public Use
  Company Number: US-JNJFOC-20100502703

PATIENT
  Sex: Female

DRUGS (4)
  1. LEVAQUIN [Suspect]
     Indication: OROPHARYNGEAL PAIN
     Route: 048
  2. LEVAQUIN [Suspect]
     Indication: SINUSITIS
     Route: 048
  3. CIPROFLOXACIN HCL [Suspect]
     Indication: OROPHARYNGEAL PAIN
     Route: 065
  4. CIPROFLOXACIN HCL [Suspect]
     Route: 065

REACTIONS (1)
  - MENISCUS LESION [None]
